FAERS Safety Report 5875040-6 (Version None)
Quarter: 2008Q3

REPORT INFORMATION
  Report Type: 
  Country: None (occurrence: None)
  Receive Date: 20080904
  Receipt Date: 20080819
  Transmission Date: 20090109
  Serious: Yes (Hospitalization)
  Sender: FDA-Public Use
  Company Number: 2008PL000128

PATIENT
  Age: 82 Year
  Sex: Male
  Weight: 67.2 kg

DRUGS (10)
  1. ZYLOPRIM [Suspect]
     Indication: PROPHYLAXIS
     Dosage: 300 MG;1X;PO
     Route: 048
     Dates: start: 20080818, end: 20080818
  2. ZYLOPRIM [Suspect]
     Indication: TUMOUR LYSIS SYNDROME
     Dosage: 300 MG;1X;PO
     Route: 048
     Dates: start: 20080818, end: 20080818
  3. RANITIDINE [Concomitant]
  4. LOVASTATIN [Concomitant]
  5. TERAZOSIN [Concomitant]
  6. TYLENOL WITH CODEIN #3 [Concomitant]
  7. ASCORBIC ACID [Concomitant]
  8. VITAMIN E [Concomitant]
  9. MEGACE [Concomitant]
  10. SELENIUM [Concomitant]

REACTIONS (2)
  - PAIN IN EXTREMITY [None]
  - PAIN OF SKIN [None]
